FAERS Safety Report 4600042-7 (Version None)
Quarter: 2005Q1

REPORT INFORMATION
  Report Type: 
  Country: None (occurrence: None)
  Receive Date: 20050303
  Receipt Date: 20050225
  Transmission Date: 20050727
  Serious: Yes (Hospitalization)
  Sender: FDA-Public Use
  Company Number: GBWYE465701MAR05

PATIENT
  Age: 90 Year
  Sex: Female

DRUGS (2)
  1. ADVIL [Suspect]
     Dosage: 400 MG 3X PER 1 DAY, ORAL
     Route: 048
     Dates: start: 20041201
  2. BENDROFLUAZIDE (BENDROFLUMETHIAZIDE) [Concomitant]

REACTIONS (2)
  - REFLUX OESOPHAGITIS [None]
  - UPPER GASTROINTESTINAL HAEMORRHAGE [None]
